FAERS Safety Report 10950231 (Version 1)
Quarter: 2015Q1

REPORT INFORMATION
  Report Type: Spontaneous
  Country: ES (occurrence: ES)
  Receive Date: 20150324
  Receipt Date: 20150324
  Transmission Date: 20150721
  Serious: Yes (Hospitalization)
  Sender: FDA-Public Use
  Company Number: PHHY2015ES033351

PATIENT
  Age: 22 Year
  Sex: Male
  Weight: 109 kg

DRUGS (2)
  1. NANDROLONE [Suspect]
     Active Substance: NANDROLONE
     Indication: PRODUCT USED FOR UNKNOWN INDICATION
     Dosage: 750 MG, QW IN ALTERNATING CYCLES OF 6 WEEKS AND 3 WEEKS OFF
     Route: 065
  2. TESTOSTERONE. [Suspect]
     Active Substance: TESTOSTERONE
     Indication: PRODUCT USED FOR UNKNOWN INDICATION
     Dosage: 750 MG, QW IN ALTERNATING CYCLES OF 6 WEEKS AND 3 WEEKS OFF
     Route: 065

REACTIONS (18)
  - Hyperhidrosis [Recovered/Resolved]
  - Intracardiac thrombus [Unknown]
  - Peripheral arterial occlusive disease [Unknown]
  - Asthenia [Recovered/Resolved]
  - Peripheral ischaemia [Recovered/Resolved]
  - Drug abuse [Recovered/Resolved]
  - Femoral artery occlusion [Unknown]
  - Right ventricular dysfunction [Recovered/Resolved]
  - Renal impairment [Recovered/Resolved]
  - Headache [Recovered/Resolved]
  - Left ventricular hypertrophy [Recovered/Resolved]
  - Hypertensive crisis [Recovered/Resolved]
  - Leukocytosis [Recovered/Resolved]
  - Exercise tolerance decreased [Recovered/Resolved]
  - Left ventricular dysfunction [Unknown]
  - Dilatation ventricular [Recovered/Resolved]
  - Abdominal pain [Recovered/Resolved]
  - Hypotension [Recovered/Resolved]
